FAERS Safety Report 5234852-2 (Version None)
Quarter: 2007Q1

REPORT INFORMATION
  Report Type: 
  Country: None (occurrence: None)
  Receive Date: 20070209
  Receipt Date: 20070129
  Transmission Date: 20070707
  Serious: Yes (Death, Other)
  Sender: FDA-Public Use
  Company Number: US-PFIZER INC-2007007870

PATIENT
  Sex: Male

DRUGS (1)
  1. CELEBREX [Suspect]
     Route: 048

REACTIONS (1)
  - DEATH [None]
